FAERS Safety Report 4741657-5 (Version None)
Quarter: 2005Q3

REPORT INFORMATION
  Report Type: 
  Country: None (occurrence: None)
  Receive Date: 20050801
  Receipt Date: 20050609
  Transmission Date: 20060218
  Serious: No
  Sender: FDA-Public Use
  Company Number: 2005PV000023

PATIENT
  Age: 53 Year
  Sex: Male
  Weight: 107.9561 kg

DRUGS (3)
  1. BYETTA [Suspect]
     Indication: DIABETES MELLITUS NON-INSULIN-DEPENDENT
     Dosage: 5 UG; BID; SC
     Route: 058
     Dates: start: 20050602, end: 20050604
  2. NPH INSULIN [Concomitant]
  3. HUMALOG [Concomitant]

REACTIONS (2)
  - HEADACHE [None]
  - NAUSEA [None]
